FAERS Safety Report 16378049 (Version 3)
Quarter: 2019Q3

REPORT INFORMATION
  Report Type: Spontaneous
  Country: US (occurrence: US)
  Receive Date: 20190531
  Receipt Date: 20190717
  Transmission Date: 20191004
  Serious: Yes (Other)
  Sender: FDA-Public Use
  Company Number: US-CELGENEUS-USA-20190509367

PATIENT
  Sex: Female

DRUGS (1)
  1. OTEZLA [Suspect]
     Active Substance: APREMILAST
     Indication: PSORIASIS
     Dosage: 60 MILLIGRAM
     Route: 048

REACTIONS (12)
  - Psoriasis [Unknown]
  - Constipation [Unknown]
  - Headache [Unknown]
  - Insomnia [Unknown]
  - Myalgia [Unknown]
  - Arthralgia [Unknown]
  - Mood altered [Unknown]
  - Abdominal pain upper [Unknown]
  - Depression suicidal [Unknown]
  - Diarrhoea [Unknown]
  - Anxiety [Unknown]
  - Asthenia [Unknown]
